FAERS Safety Report 7361235-1 (Version None)
Quarter: 2011Q1

REPORT INFORMATION
  Report Type: 
  Country: None (occurrence: None)
  Receive Date: 20110318
  Receipt Date: 20110304
  Transmission Date: 20110831
  Serious: No
  Sender: FDA-Public Use
  Company Number: US-BAYER-2011-021640

PATIENT
  Age: 43 Year
  Sex: Female
  Weight: 68 kg

DRUGS (1)
  1. ALEVE (CAPLET) [Suspect]
     Dosage: TOOK 4 ALEVE WITHIN 2 HOURS, BOTTLE COUNT 24S
     Route: 048

REACTIONS (1)
  - NO ADVERSE EVENT [None]
